FAERS Safety Report 9231996 (Version 1)
Quarter: 2013Q2

REPORT INFORMATION
  Report Type: Spontaneous
  Country: US (occurrence: US)
  Receive Date: 20130415
  Receipt Date: 20130415
  Transmission Date: 20140414
  Serious: No
  Sender: FDA-Public Use
  Company Number: US-PFIZER INC-2013115382

PATIENT
  Age: 62 Year
  Sex: Female
  Weight: 126 kg

DRUGS (3)
  1. METRONIDAZOLE [Suspect]
     Dosage: UNK
  2. DOXYCYCLINE HYCLATE [Suspect]
     Dosage: UNK
  3. CODEINE [Suspect]
     Dosage: UNK

REACTIONS (1)
  - Drug hypersensitivity [Unknown]
